FAERS Safety Report 18164315 (Version 3)
Quarter: 2022Q4

REPORT INFORMATION
  Report Type: Spontaneous
  Country: DE (occurrence: DE)
  Receive Date: 20200818
  Receipt Date: 20221024
  Transmission Date: 20230112
  Serious: Yes (Hospitalization, Other)
  Sender: FDA-Public Use
  Company Number: DE-ADRED-05222-01

PATIENT
  Age: 71 Year
  Sex: Male

DRUGS (7)
  1. RAMIPRIL [Suspect]
     Active Substance: RAMIPRIL
     Dosage: 5 MG, BID (5 MG, 1-0-1-0)
     Route: 048
  2. TORSEMIDE [Suspect]
     Active Substance: TORSEMIDE
     Dosage: 10 MG, BID (10 MG, 0.5-0-0.5-0,)
     Route: 048
  3. EZETIMIBE\SIMVASTATIN [Suspect]
     Active Substance: EZETIMIBE\SIMVASTATIN
     Dosage: UNK UNK, QD (10|40 MG, 0-0-1-0)
     Route: 048
  4. XIPAMIDE [Suspect]
     Active Substance: XIPAMIDE
     Dosage: 40 MG, QD (40 MG, 1-0-0-0)
     Route: 048
  5. LERCANIDIPINE HYDROCHLORIDE [Concomitant]
     Active Substance: LERCANIDIPINE HYDROCHLORIDE
     Dosage: 10 MG (10 MG, 0-0-1-0)
     Route: 048
  6. ASPIRIN [Concomitant]
     Active Substance: ASPIRIN
     Dosage: 100 MG (100 MG, 1-0-0-0)
     Route: 048
  7. BISOPROLOL [Concomitant]
     Active Substance: BISOPROLOL
     Dosage: 2.5 MG, QD (2.5 MG, 1-0-0-0,)
     Route: 048

REACTIONS (5)
  - Acute kidney injury [Unknown]
  - Weight decreased [Unknown]
  - Thirst [Unknown]
  - Diarrhoea [Unknown]
  - Dehydration [Unknown]
